FAERS Safety Report 16903131 (Version 1)
Quarter: 2019Q4

REPORT INFORMATION
  Report Type: Spontaneous
  Country: US (occurrence: US)
  Receive Date: 20191010
  Receipt Date: 20191010
  Transmission Date: 20200122
  Serious: Yes (Disabling, Other)
  Sender: FDA-Public Use
  Company Number: US-009507513-1910USA006180

PATIENT
  Sex: Female

DRUGS (2)
  1. KLONOPIN [Suspect]
     Active Substance: CLONAZEPAM
     Dosage: UNK
  2. BELSOMRA [Suspect]
     Active Substance: SUVOREXANT
     Indication: SLEEP DISORDER
     Dosage: UNK
     Route: 048

REACTIONS (5)
  - Recurrent cancer [Unknown]
  - Suspected counterfeit product [Unknown]
  - Feeling abnormal [Unknown]
  - Amputee [Unknown]
  - Drug ineffective [Not Recovered/Not Resolved]
